FAERS Safety Report 5503124-0 (Version None)
Quarter: 2007Q4

REPORT INFORMATION
  Report Type: 
  Country: None (occurrence: None)
  Receive Date: 20071029
  Receipt Date: 20071029
  Transmission Date: 20080405
  Serious: Yes (Hospitalization, Other)
  Sender: FDA-Public Use
  Company Number: None

PATIENT
  Age: 41 Year
  Sex: Male
  Weight: 106.5953 kg

DRUGS (3)
  1. NARDIL [Suspect]
     Indication: DEPRESSION
     Dosage: 90MG  30MG T.I.D.  PO
     Route: 048
     Dates: start: 19930401, end: 20071026
  2. NARDIL [Suspect]
     Indication: GENERALISED ANXIETY DISORDER
     Dosage: 90MG  30MG T.I.D.  PO
     Route: 048
     Dates: start: 19930401, end: 20071026
  3. NARDIL [Suspect]
     Indication: SOCIAL PHOBIA
     Dosage: 90MG  30MG T.I.D.  PO
     Route: 048
     Dates: start: 19930401, end: 20071026

REACTIONS (5)
  - DRUG LEVEL BELOW THERAPEUTIC [None]
  - DYSTHYMIC DISORDER [None]
  - GENERALISED ANXIETY DISORDER [None]
  - PHARMACEUTICAL PRODUCT COMPLAINT [None]
  - SOCIAL PHOBIA [None]
